FAERS Safety Report 8240362-0 (Version None)
Quarter: 2012Q1

REPORT INFORMATION
  Report Type: 
  Country: None (occurrence: None)
  Receive Date: 20120312
  Receipt Date: 20110819
  Transmission Date: 20120608
  Serious: Yes (Hospitalization)
  Sender: FDA-Public Use
  Company Number: 2011SP039487

PATIENT
  Age: 56 Year
  Sex: Female

DRUGS (6)
  1. LAMICTAL [Concomitant]
  2. LITHIUM CARBONATE [Concomitant]
  3. EFFEXOR [Concomitant]
  4. SAPHRIS [Suspect]
     Indication: BIPOLAR DISORDER
     Dosage: 10 MG;HS;SL
     Route: 060
     Dates: start: 20110808, end: 20110814
  5. KLONOPIN [Concomitant]
  6. PERCOCET [Concomitant]

REACTIONS (5)
  - WEIGHT INCREASED [None]
  - PAIN IN EXTREMITY [None]
  - OEDEMA PERIPHERAL [None]
  - BLOOD CREATINE PHOSPHOKINASE INCREASED [None]
  - INAPPROPRIATE SCHEDULE OF DRUG ADMINISTRATION [None]
